FAERS Safety Report 6737324-9 (Version None)
Quarter: 2010Q2

REPORT INFORMATION
  Report Type: 
  Country: None (occurrence: None)
  Receive Date: 20100524
  Receipt Date: 20100512
  Transmission Date: 20101027
  Serious: Yes (Death, Hospitalization)
  Sender: FDA-Public Use
  Company Number: US-SHIRE-ALL1-2010-02163

PATIENT

DRUGS (2)
  1. FOSRENOL [Suspect]
     Indication: HYPERPHOSPHATAEMIA
     Dosage: 1000 MG, 3X/DAY:TID
     Route: 048
     Dates: start: 20070101, end: 20100423
  2. FOSRENOL [Suspect]

REACTIONS (3)
  - CARDIAC ARREST [None]
  - CONDITION AGGRAVATED [None]
  - HEART VALVE INCOMPETENCE [None]
